FAERS Safety Report 8894278 (Version 1)
Quarter: 2012Q4

REPORT INFORMATION
  Report Type: 
  Country: US (occurrence: US)
  Receive Date: 20121107
  Receipt Date: 20121107
  Transmission Date: 20130627
  Serious: No
  Sender: FDA-Public Use
  Company Number: US-AMGEN-USASP2011057742

PATIENT
  Age: 49 Year
  Sex: Female
  Weight: 78.46 kg

DRUGS (2)
  1. ENBREL [Suspect]
     Indication: RHEUMATOID ARTHRITIS
     Dosage: 50 mg, qwk
     Dates: start: 20070401, end: 201104
  2. VITAMINS                           /00067501/ [Concomitant]

REACTIONS (1)
  - Lymphocyte count increased [Recovered/Resolved]
